FAERS Safety Report 17921208 (Version 2)
Quarter: 2022Q3

REPORT INFORMATION
  Report Type: Spontaneous
  Country: US (occurrence: US)
  Receive Date: 20200622
  Receipt Date: 20220824
  Transmission Date: 20221026
  Serious: Yes (Other)
  Sender: FDA-Public Use
  Company Number: US-CADILA HEALTHCARE LIMITED-US-ZYDUS-052052

PATIENT

DRUGS (11)
  1. BUPROPION [Interacting]
     Active Substance: BUPROPION
     Indication: Depression
     Dosage: 150 MILLIGRAM
     Route: 048
  2. BUPROPION [Interacting]
     Active Substance: BUPROPION
     Dosage: UNK
     Route: 065
  3. ZIPRASIDONE HYDROCHLORIDE [Interacting]
     Active Substance: ZIPRASIDONE HYDROCHLORIDE
     Indication: Depression
     Dosage: 40 MILLIGRAM, BID
     Route: 048
  4. ZIPRASIDONE HYDROCHLORIDE [Interacting]
     Active Substance: ZIPRASIDONE HYDROCHLORIDE
     Dosage: UNK
     Route: 065
  5. DESVENLAFAXINE [Interacting]
     Active Substance: DESVENLAFAXINE
     Indication: Depression
     Dosage: UNK
     Route: 065
  6. DESVENLAFAXINE [Interacting]
     Active Substance: DESVENLAFAXINE
     Dosage: 100 MILLIGRAM
     Route: 048
  7. TRAZODONE [Interacting]
     Active Substance: TRAZODONE HYDROCHLORIDE
     Indication: Depression
     Dosage: UNK
     Route: 065
  8. TRAZODONE [Interacting]
     Active Substance: TRAZODONE HYDROCHLORIDE
     Dosage: 50 MG EVERY NIGHT AT BEDTIME
     Route: 048
  9. BUSPIRONE [Interacting]
     Active Substance: BUSPIRONE HYDROCHLORIDE
     Indication: Depression
     Dosage: 30 MILLIGRAM, BID
     Route: 048
  10. BUSPIRONE [Interacting]
     Active Substance: BUSPIRONE HYDROCHLORIDE
     Dosage: UNK
     Route: 065
  11. HERBALS\MITRAGYNINE [Suspect]
     Active Substance: HERBALS\MITRAGYNINE
     Indication: Product used for unknown indication
     Dosage: UNK UNK, TID
     Route: 065

REACTIONS (2)
  - Serotonin syndrome [Recovered/Resolved]
  - Drug interaction [Recovered/Resolved]
